FAERS Safety Report 6720637-4 (Version None)
Quarter: 2010Q2

REPORT INFORMATION
  Report Type: 
  Country: None (occurrence: None)
  Receive Date: 20100511
  Receipt Date: 20100503
  Transmission Date: 20101027
  Serious: Yes (Other)
  Sender: FDA-Public Use
  Company Number: CA-JNJFOC-20100405376

PATIENT

DRUGS (1)
  1. REMICADE [Suspect]
     Indication: CROHN'S DISEASE
     Dosage: 33 INFUSIONS TOTAL  DOSE ^500^
     Route: 042

REACTIONS (2)
  - HERPES ZOSTER [None]
  - ROAD TRAFFIC ACCIDENT [None]
